FAERS Safety Report 9022272 (Version 2)
Quarter: 2013Q1

REPORT INFORMATION
  Report Type: Spontaneous
  Country: CA (occurrence: CA)
  Receive Date: 20130118
  Receipt Date: 20130130
  Transmission Date: 20140127
  Serious: Yes (Hospitalization, Other)
  Sender: FDA-Public Use
  Company Number: PHHY2013CA004004

PATIENT
  Age: 54 Year
  Sex: Female

DRUGS (6)
  1. CLOZAPINE [Suspect]
     Dosage: 337.5 MG,DAILY
  2. LITHIUM [Suspect]
     Dosage: 450 MG, DAILY
  3. LEPTILAN [Concomitant]
     Dosage: UNK
  4. OXYBUTYNIN [Concomitant]
     Dosage: 10 MG, DAILY
  5. VALPROIC ACID [Concomitant]
     Dosage: 1000 MG, DAILY
  6. TIOTROPIUM BROMIDE [Concomitant]
     Dosage: 18 UG,DAILY

REACTIONS (14)
  - Mental disorder [Unknown]
  - Colonic pseudo-obstruction [Unknown]
  - Abdominal pain lower [Recovered/Resolved]
  - Abdominal distension [Recovered/Resolved]
  - Intestinal dilatation [Recovering/Resolving]
  - Intestinal obstruction [Recovered/Resolved]
  - Antipsychotic drug level increased [Unknown]
  - Blood lactic acid decreased [Unknown]
  - Blood urea decreased [Unknown]
  - Red blood cell sedimentation rate decreased [Unknown]
  - White blood cell count increased [Unknown]
  - Diarrhoea [Unknown]
  - Asthenia [Unknown]
  - Fatigue [Unknown]
